FAERS Safety Report 4468090-8 (Version None)
Quarter: 2004Q4

REPORT INFORMATION
  Report Type: 
  Country: None (occurrence: None)
  Receive Date: 20041004
  Receipt Date: 20040921
  Transmission Date: 20050328
  Serious: Yes (Hospitalization)
  Sender: FDA-Public Use
  Company Number: 200414069BCC

PATIENT
  Age: 78 Year
  Sex: Female
  Weight: 70.3075 kg

DRUGS (6)
  1. ALEVE [Suspect]
     Indication: BACK PAIN
     Dosage: 220 MG, TID, ORAL
     Route: 048
     Dates: start: 20040816
  2. NEXIUM [Concomitant]
  3. HYDROCHLOROTHIAZIDE [Concomitant]
  4. VITAMINS NOS [Concomitant]
  5. METHYLSULFONYLMETHANE [Concomitant]
  6. NUTRITIONAL SUPPLEMENT (NOS) [Concomitant]

REACTIONS (1)
  - KIDNEY INFECTION [None]
